FAERS Safety Report 12635989 (Version 7)
Quarter: 2018Q1

REPORT INFORMATION
  Report Type: Spontaneous
  Country: US (occurrence: US)
  Receive Date: 20160809
  Receipt Date: 20180227
  Transmission Date: 20180508
  Serious: Yes (Hospitalization)
  Sender: FDA-Public Use
  Company Number: US-PFIZER INC-2016375133

PATIENT
  Age: 67 Year
  Sex: Female
  Weight: 108.8 kg

DRUGS (47)
  1. BYSTOLIC [Concomitant]
     Active Substance: NEBIVOLOL HYDROCHLORIDE
     Dosage: 5 MG, DAILY
  2. PERCOCET [Concomitant]
     Active Substance: ACETAMINOPHEN\OXYCODONE HYDROCHLORIDE
     Dosage: UNK, DAILY (7.51325 PO Q 6 PM)
     Route: 048
  3. LYRICA [Suspect]
     Active Substance: PREGABALIN
     Indication: MONONEUROPATHY
  4. LYRICA [Suspect]
     Active Substance: PREGABALIN
     Indication: IMMUNISATION
  5. PREDNISONE. [Concomitant]
     Active Substance: PREDNISONE
     Indication: POLYMYALGIA RHEUMATICA
     Dosage: 19 MG, DAILY, (IN THE MORNING FOR 2-3 WEEKS)
  6. XANAX [Concomitant]
     Active Substance: ALPRAZOLAM
     Dosage: 1 MG, AS NEEDED (TID; EVERY BEDTIME)
     Route: 048
     Dates: start: 20160201
  7. CENTURY MATURE [Concomitant]
     Dosage: UNK, 1X/DAY
  8. VITAMIN D3 [Concomitant]
     Active Substance: CHOLECALCIFEROL
     Dosage: 1000 IU, 3X/DAY
     Dates: start: 20131125
  9. VITAMIN D3 [Concomitant]
     Active Substance: CHOLECALCIFEROL
     Dosage: 1000 IU, 1X/DAY
     Dates: start: 20131125
  10. OMEPRAZOLE. [Concomitant]
     Active Substance: OMEPRAZOLE
     Dosage: 20 MG, DAILY
     Route: 048
     Dates: start: 20160201
  11. PREDNISONE. [Concomitant]
     Active Substance: PREDNISONE
     Dosage: 18 MG, (FOR 2-3 WEEKS)
  12. LYRICA [Suspect]
     Active Substance: PREGABALIN
     Indication: NEUROPATHY PERIPHERAL
     Dosage: 50 MG, 3X/DAY
     Route: 048
     Dates: start: 20160421
  13. XANAX [Concomitant]
     Active Substance: ALPRAZOLAM
     Dosage: UNK
     Dates: start: 2002
  14. VITAMIN D3 [Concomitant]
     Active Substance: CHOLECALCIFEROL
     Dosage: UNK
     Dates: start: 2012
  15. OMEPRAZOLE. [Concomitant]
     Active Substance: OMEPRAZOLE
     Dosage: UNK
     Dates: start: 2012
  16. SUPER B COMPLEX [Concomitant]
     Active Substance: CYANOCOBALAMIN\DEXPANTHENOL\NIACINAMIDE\PYRIDOXINE HYDROCHLORIDE\RIBOFLAVIN 5^-PHOSPHATE SODIUM\THIAMINE HYDROCHLORIDE\VITAMIN B COMPLEX
     Dosage: UNK
  17. COREG [Concomitant]
     Active Substance: CARVEDILOL
     Dosage: 6.25 MG, 2X/DAY (WITH FOOD)
     Route: 048
     Dates: start: 20160201
  18. LISINOPRIL. [Concomitant]
     Active Substance: LISINOPRIL
     Dosage: 20 MG, DAILY
     Route: 048
     Dates: start: 20160201
  19. PAROXETINE. [Concomitant]
     Active Substance: PAROXETINE
     Dosage: 10 MG, DAILY
     Route: 048
     Dates: start: 20160201
  20. NORTRIPTYLINE [Concomitant]
     Active Substance: NORTRIPTYLINE
     Dosage: 2X/DAY, (ONE WEEK)
  21. LYRICA [Suspect]
     Active Substance: PREGABALIN
     Indication: FATIGUE
  22. PAROXETINE. [Concomitant]
     Active Substance: PAROXETINE
     Dosage: UNK
     Dates: start: 2015
  23. PAROXETINE. [Concomitant]
     Active Substance: PAROXETINE
     Dosage: 10 MG, DAILY
     Dates: start: 20160323
  24. PREDNISONE. [Concomitant]
     Active Substance: PREDNISONE
     Dosage: 17 MG, (FOR 2-3 WEEKS)
  25. PREDNISONE. [Concomitant]
     Active Substance: PREDNISONE
     Dosage: 1 MG, 4X/DAY
     Route: 048
     Dates: start: 20160602
  26. RANITIDINE. [Concomitant]
     Active Substance: RANITIDINE
     Dosage: 150 MG, 2X/DAY
     Route: 048
     Dates: start: 20160201
  27. ZANAFLEX [Concomitant]
     Active Substance: TIZANIDINE HYDROCHLORIDE
     Dosage: 4 MG, DAILY (Q 8 PM)
     Route: 048
  28. CETIRIZINE [Concomitant]
     Active Substance: CETIRIZINE HYDROCHLORIDE
     Dosage: 10 MG, ONCE A DAY
     Route: 048
  29. MAGNESIUM [Concomitant]
     Active Substance: MAGNESIUM
     Dosage: 400 MG, UNK
     Dates: start: 2017
  30. ALPRAZOLAM. [Concomitant]
     Active Substance: ALPRAZOLAM
     Dosage: 1 MG, 1X/DAY[PRESCRIPTION READS TO TAKE IT THREE]
  31. FLUOXETINE [Concomitant]
     Active Substance: FLUOXETINE HYDROCHLORIDE
     Dosage: 10 MG, 1X/DAY(ONCE A DAY)
  32. ZYRTEC [Concomitant]
     Active Substance: CETIRIZINE HYDROCHLORIDE
     Dosage: UNK
     Dates: start: 2005
  33. SINGULAIR [Concomitant]
     Active Substance: MONTELUKAST SODIUM
     Dosage: UNK
     Dates: start: 2000
  34. PREDNISONE. [Concomitant]
     Active Substance: PREDNISONE
     Dosage: 16 MG, (FOR 2-3 WEEKS)
  35. NORTRIPTYLINE [Concomitant]
     Active Substance: NORTRIPTYLINE
     Dosage: AT BEDTIME (ONE WEEK)
     Route: 048
     Dates: start: 20160201
  36. LISINOPRIL/HCTZ [Concomitant]
     Active Substance: HYDROCHLOROTHIAZIDE\LISINOPRIL
     Dosage: [HYDROCHLOROTHIAZIDE: 25 MG; LISINOPRIL: 20 MG TAKE IT ONCE A DAY]
     Route: 048
     Dates: start: 20160201
  37. LISINOPRIL/HCTZ [Concomitant]
     Active Substance: HYDROCHLOROTHIAZIDE\LISINOPRIL
     Dosage: UNK, TAKE IT ONCE A DAY
     Dates: start: 2017
  38. AMMONIUM [Concomitant]
     Dosage: 12 %, 2X/DAY
  39. LYRICA [Suspect]
     Active Substance: PREGABALIN
     Indication: FIBROMYALGIA
     Dosage: 50 MG, 2X/DAY (TOOK 1 TWICE A DAY)
     Route: 048
     Dates: start: 2016, end: 201707
  40. LYRICA [Suspect]
     Active Substance: PREGABALIN
     Indication: ESSENTIAL HYPERTENSION
     Dosage: 50 MG, 2X/DAY (TOOK 1 TWICE A DAY)
     Dates: start: 201710
  41. LIPITOR [Concomitant]
     Active Substance: ATORVASTATIN CALCIUM
     Dosage: 40 MG, DAILY
     Route: 048
     Dates: start: 20160212
  42. ZYRTEC [Concomitant]
     Active Substance: CETIRIZINE HYDROCHLORIDE
     Dosage: 10 MG, DAILY, (AT BED TIME)
     Route: 048
     Dates: start: 20160201
  43. VITAMIN B COMPLEX [Concomitant]
     Active Substance: CYANOCOBALAMIN\DEXPANTHENOL\NIACINAMIDE\PYRIDOXINE HYDROCHLORIDE\RIBOFLAVIN 5^-PHOSPHATE SODIUM\THIAMINE HYDROCHLORIDE\VITAMIN B COMPLEX
     Dosage: UNK, 1X/DAY
     Dates: start: 2012
  44. PREDNISONE. [Concomitant]
     Active Substance: PREDNISONE
     Dosage: 10 MG, DAILY
     Route: 048
     Dates: start: 20160421
  45. ARISTOCORT [Concomitant]
     Active Substance: TRIAMCINOLONE DIACETATE
     Dosage: 0.1 %, 2X/DAY
  46. SINGULAIR [Concomitant]
     Active Substance: MONTELUKAST SODIUM
     Dosage: 10 MG, DAILY, (IN THE EVENING)
     Route: 048
     Dates: start: 20160201
  47. NORTRIPTYLINE [Concomitant]
     Active Substance: NORTRIPTYLINE
     Dosage: 3X/DAY, (ONE WEEK)

REACTIONS (18)
  - Pain [Recovered/Resolved]
  - Drug hypersensitivity [Unknown]
  - Tremor [Recovered/Resolved]
  - Dizziness [Unknown]
  - Gait inability [Recovered/Resolved]
  - Drug ineffective [Unknown]
  - Nausea [Recovered/Resolved]
  - Diarrhoea [Recovered/Resolved]
  - Blister [Recovered/Resolved]
  - Eating disorder [Unknown]
  - Product use issue [Recovered/Resolved]
  - Withdrawal syndrome [Recovered/Resolved]
  - Pain in extremity [Recovered/Resolved]
  - Formication [Recovered/Resolved]
  - Restless legs syndrome [Unknown]
  - Gait disturbance [Recovered/Resolved]
  - Burning sensation [Unknown]
  - Crying [Recovered/Resolved]

NARRATIVE: CASE EVENT DATE: 2017
